FAERS Safety Report 9856227 (Version 2)
Quarter: 2014Q1

REPORT INFORMATION
  Report Type: Spontaneous
  Country: US (occurrence: US)
  Receive Date: 20140130
  Receipt Date: 20140327
  Transmission Date: 20141002
  Serious: Yes (Life-Threatening, Congenital Anomaly, Other)
  Sender: FDA-Public Use
  Company Number: US-PFIZER INC-2014028351

PATIENT
  Sex: Male

DRUGS (6)
  1. ZOLOFT [Suspect]
     Dosage: UNK
     Route: 064
     Dates: start: 1993, end: 2002
  2. ZOLOFT [Suspect]
     Dosage: UNK
     Route: 064
     Dates: start: 200205, end: 200305
  3. SERTRALINE HCL [Suspect]
     Dosage: UNK
     Route: 064
     Dates: start: 1993, end: 2002
  4. SERTRALINE HCL [Suspect]
     Dosage: UNK
     Route: 064
     Dates: start: 200205, end: 200305
  5. LORTAB [Concomitant]
     Dosage: UNK
     Route: 064
  6. AMOXICILLIN [Concomitant]
     Dosage: UNK
     Route: 064

REACTIONS (6)
  - Maternal exposure during pregnancy [Unknown]
  - Congenital anomaly [Unknown]
  - Congenital coronary artery malformation [Unknown]
  - Atrial septal defect [Unknown]
  - Premature baby [Unknown]
  - Cardiac murmur [Unknown]
